FAERS Safety Report 24641962 (Version 1)
Quarter: 2024Q4

REPORT INFORMATION
  Report Type: Report from Study
  Country: DE (occurrence: DE)
  Receive Date: 20241120
  Receipt Date: 20241120
  Transmission Date: 20250115
  Serious: Yes (Death)
  Sender: ABBVIE
  Company Number: DE-ABBVIE-5991514

PATIENT
  Age: 75 Year
  Sex: Male

DRUGS (1)
  1. FOSCARBIDOPA\FOSLEVODOPA [Suspect]
     Active Substance: FOSCARBIDOPA\FOSLEVODOPA
     Indication: Parkinson^s disease
     Dosage: SD: 0,50 ML, CRN: 0,35 ML/H, CR: 0,45 ML/H, CRH: 0,47 ML/H, ED: 0,20 ML
     Route: 058
     Dates: start: 20240909, end: 20241113

REACTIONS (2)
  - Cardiac failure [Fatal]
  - General physical health deterioration [Not Recovered/Not Resolved]

NARRATIVE: CASE EVENT DATE: 20240101
